FAERS Safety Report 19046983 (Version 6)
Quarter: 2022Q2

REPORT INFORMATION
  Report Type: Spontaneous
  Country: JP (occurrence: JP)
  Receive Date: 20210323
  Receipt Date: 20220607
  Transmission Date: 20220721
  Serious: Yes (Hospitalization, Other)
  Sender: FDA-Public Use
  Company Number: JP-DSJP-DSJ-2021-108296

PATIENT
  Age: 50 Year
  Sex: Female
  Weight: 38 kg

DRUGS (12)
  1. ENHERTU [Suspect]
     Active Substance: FAM-TRASTUZUMAB DERUXTECAN-NXKI
     Indication: HER2 positive breast cancer
     Dosage: 5.4 MG/KG, ONCE EVERY 3 WK
     Route: 041
     Dates: start: 20210309, end: 20210309
  2. ENHERTU [Suspect]
     Active Substance: FAM-TRASTUZUMAB DERUXTECAN-NXKI
     Dosage: 5.4 MG/KG, ONCE EVERY 3 WK
     Route: 041
     Dates: start: 20210330, end: 20210330
  3. ENHERTU [Suspect]
     Active Substance: FAM-TRASTUZUMAB DERUXTECAN-NXKI
     Dosage: 5.4 MG/KG, ONCE EVERY 3 WK
     Route: 041
     Dates: start: 20210420, end: 20210420
  4. ENHERTU [Suspect]
     Active Substance: FAM-TRASTUZUMAB DERUXTECAN-NXKI
     Dosage: 4.4 MG/KG, ONCE EVERY 3 WK
     Route: 041
     Dates: start: 20210511, end: 20210511
  5. ENHERTU [Suspect]
     Active Substance: FAM-TRASTUZUMAB DERUXTECAN-NXKI
     Dosage: 3.2 MG/KG, ONCE EVERY 3 WK
     Route: 041
     Dates: start: 20210608, end: 20210608
  6. ENHERTU [Suspect]
     Active Substance: FAM-TRASTUZUMAB DERUXTECAN-NXKI
     Dosage: 3.2 MG/KG, ONCE EVERY 3 WK
     Route: 041
     Dates: start: 20210629, end: 20210629
  7. ENHERTU [Suspect]
     Active Substance: FAM-TRASTUZUMAB DERUXTECAN-NXKI
     Dosage: 3.2 MG/KG, ONCE EVERY 3 WK
     Route: 041
     Dates: start: 20210817, end: 20210817
  8. ENHERTU [Suspect]
     Active Substance: FAM-TRASTUZUMAB DERUXTECAN-NXKI
     Dosage: 3.2 MG/KG, ONCE EVERY 3 WK
     Route: 041
     Dates: start: 20210907, end: 20210907
  9. ENHERTU [Suspect]
     Active Substance: FAM-TRASTUZUMAB DERUXTECAN-NXKI
     Dosage: 3.2 MG/KG, ONCE EVERY 3 WK
     Route: 041
     Dates: start: 20210928, end: 20210928
  10. DENOSUMAB [Concomitant]
     Active Substance: DENOSUMAB
     Dosage: UNK
     Route: 065
  11. DECADRON [Concomitant]
     Active Substance: DEXAMETHASONE
     Dosage: UNK
     Route: 065
  12. UNSPECIFIED INGREDIENT [Suspect]
     Active Substance: UNSPECIFIED INGREDIENT
     Dosage: UNK
     Route: 065

REACTIONS (5)
  - Epilepsy [Recovered/Resolved]
  - Epilepsy [Recovered/Resolved]
  - Epilepsy [Unknown]
  - Neuropathy peripheral [Not Recovered/Not Resolved]
  - Anaemia [Recovered/Resolved]

NARRATIVE: CASE EVENT DATE: 20210316
